FAERS Safety Report 15011721 (Version 1)
Quarter: 2018Q2

REPORT INFORMATION
  Report Type: Spontaneous
  Country: FR (occurrence: FR)
  Receive Date: 20180614
  Receipt Date: 20180614
  Transmission Date: 20180711
  Serious: Yes (Death, Other)
  Sender: FDA-Public Use
  Company Number: FR-SA-2015SA052351

PATIENT
  Age: 73 Year
  Sex: Male
  Weight: 63 kg

DRUGS (7)
  1. ESOMEPRAZOLE [Suspect]
     Active Substance: ESOMEPRAZOLE
     Indication: PRODUCT USED FOR UNKNOWN INDICATION
     Dosage: UNK UNK,UNK
     Route: 065
     Dates: end: 20150330
  2. GAVISCON [Suspect]
     Active Substance: ALUMINUM HYDROXIDE\MAGNESIUM CARBONATE
     Indication: PRODUCT USED FOR UNKNOWN INDICATION
     Dosage: UNK
     Route: 065
     Dates: end: 20150330
  3. XARELTO [Suspect]
     Active Substance: RIVAROXABAN
     Dosage: 15 MG,QD
     Route: 048
     Dates: end: 20150330
  4. HEPT A MYL [Suspect]
     Active Substance: HEPTAMINOL HYDROCHLORIDE
     Indication: PRODUCT USED FOR UNKNOWN INDICATION
     Dosage: UNK UNK,UNK
     Route: 065
     Dates: end: 20150330
  5. XARELTO [Suspect]
     Active Substance: RIVAROXABAN
     Dosage: 20 MG,QD
     Route: 048
     Dates: start: 20150213
  6. XARELTO [Suspect]
     Active Substance: RIVAROXABAN
     Indication: THROMBOSIS PROPHYLAXIS
     Dosage: 15 MG,BID
     Route: 048
     Dates: start: 201502, end: 201502
  7. METEOSPASMYL [ALVERINE CITRATE;DL-METHIONINE [Suspect]
     Active Substance: ALVERINE CITRATE\RACEMETHIONINE
     Indication: PRODUCT USED FOR UNKNOWN INDICATION
     Dosage: UNK UNK,UNK
     Route: 065
     Dates: end: 20150330

REACTIONS (2)
  - Thrombosis [Unknown]
  - Sudden death [None]

NARRATIVE: CASE EVENT DATE: 20150330
